FAERS Safety Report 8019109-9 (Version None)
Quarter: 2012Q1

REPORT INFORMATION
  Report Type: 
  Country: None (occurrence: None)
  Receive Date: 20120103
  Receipt Date: 20111228
  Transmission Date: 20120608
  Serious: Yes (Other)
  Sender: FDA-Public Use
  Company Number: US-BAYER-2011-124167

PATIENT
  Sex: Female

DRUGS (2)
  1. YAZ [Suspect]
     Dosage: UNK
     Dates: start: 20090101, end: 20100401
  2. YASMIN [Suspect]
     Dosage: UNK
     Dates: start: 20090101, end: 20100401

REACTIONS (6)
  - DYSPEPSIA [None]
  - GALLBLADDER DISORDER [None]
  - PAIN [None]
  - LIVER INJURY [None]
  - INJURY [None]
  - EMOTIONAL DISTRESS [None]
